FAERS Safety Report 13471372 (Version 3)
Quarter: 2017Q3

REPORT INFORMATION
  Report Type: Spontaneous
  Country: US (occurrence: US)
  Receive Date: 20170424
  Receipt Date: 20170914
  Transmission Date: 20171127
  Serious: Yes (Hospitalization, Congenital Anomaly, Other)
  Sender: FDA-Public Use
  Company Number: PHEH2017US011743

PATIENT
  Sex: Female

DRUGS (2)
  1. ONDANSETRONE DR. REDDY^S [Suspect]
     Active Substance: ONDANSETRON HYDROCHLORIDE
     Indication: FOETAL EXPOSURE DURING PREGNANCY
     Dosage: MOTHER^S DOSE: 4 MG
     Route: 064
  2. ZOFRAN [Suspect]
     Active Substance: ONDANSETRON HYDROCHLORIDE
     Indication: FOETAL EXPOSURE DURING PREGNANCY
     Route: 064

REACTIONS (15)
  - Atrial septal defect [Unknown]
  - Injury [Unknown]
  - Jaundice neonatal [Unknown]
  - Eyelid oedema [Unknown]
  - Left-to-right cardiac shunt [Unknown]
  - Coronary artery dilatation [Unknown]
  - Heart valve incompetence [Unknown]
  - Hyperbilirubinaemia neonatal [Unknown]
  - Scleral haemorrhage [Unknown]
  - Eye discharge [Unknown]
  - Conjunctivitis bacterial [Unknown]
  - Dacryostenosis congenital [Unknown]
  - Cyanosis neonatal [Unknown]
  - Persistent left superior vena cava [Unknown]
  - Foetal exposure during pregnancy [Unknown]
